FAERS Safety Report 8817567 (Version 1)
Quarter: 2012Q4

REPORT INFORMATION
  Report Type: 
  Country: US (occurrence: US)
  Receive Date: 20121001
  Receipt Date: 20121001
  Transmission Date: 20130627
  Serious: No
  Sender: FDA-Public Use
  Company Number: US-MUTUAL PHARMACEUTICAL COMPANY, INC.-CLND20120001

PATIENT
  Age: 50 None
  Sex: Female
  Weight: 52.21 kg

DRUGS (2)
  1. CLONIDINE HYDROCHLORIDE [Suspect]
     Indication: GENERALIZED FLUSHING
     Route: 048
     Dates: start: 201202, end: 201202
  2. CLONIDINE HYDROCHLORIDE [Suspect]
     Route: 048
     Dates: start: 20120306

REACTIONS (5)
  - Upper-airway cough syndrome [Recovered/Resolved]
  - Increased upper airway secretion [Not Recovered/Not Resolved]
  - Hypersensitivity [Recovered/Resolved]
  - Pre-existing condition improved [Recovered/Resolved]
  - Off label use [None]
